FAERS Safety Report 14825577 (Version 1)
Quarter: 2018Q2

REPORT INFORMATION
  Report Type: Spontaneous
  Country: None (occurrence: FR)
  Receive Date: 20180430
  Receipt Date: 20180430
  Transmission Date: 20180711
  Serious: Yes (Other)
  Sender: FDA-Public Use
  Company Number: FR-MERCK KGAA-2046786

PATIENT
  Age: 51 Year
  Sex: Female

DRUGS (1)
  1. NOVOTHYROX [Suspect]
     Active Substance: LEVOTHYROXINE SODIUM
     Indication: HYPOTHYROIDISM
     Dates: start: 2017

REACTIONS (20)
  - Arthralgia [None]
  - Alopecia [None]
  - Renal pain [None]
  - Muscle spasms [None]
  - Diabetes mellitus inadequate control [None]
  - Hot flush [None]
  - Fatigue [None]
  - Burning sensation [None]
  - Musculoskeletal stiffness [None]
  - Urinary tract infection [None]
  - Abdominal pain [None]
  - Amnesia [None]
  - Insomnia [None]
  - Emotional distress [None]
  - Asthenia [None]
  - White blood cell count decreased [None]
  - Loss of personal independence in daily activities [None]
  - Dizziness [None]
  - Aggression [None]
  - Impaired driving ability [None]

NARRATIVE: CASE EVENT DATE: 2017
